FAERS Safety Report 18254064 (Version 3)
Quarter: 2020Q3

REPORT INFORMATION
  Report Type: Spontaneous
  Country: ES (occurrence: ES)
  Receive Date: 20200910
  Receipt Date: 20200922
  Transmission Date: 20201103
  Serious: Yes (Hospitalization, Other)
  Sender: FDA-Public Use
  Company Number: ES-BAUSCH-BL-2020-025860

PATIENT
  Age: 70 Year
  Sex: Male

DRUGS (2)
  1. METRONIDAZOLE. [Suspect]
     Active Substance: METRONIDAZOLE
     Indication: OSTEOMYELITIS
     Route: 065
     Dates: start: 202003, end: 2020
  2. CIPROFLOXACIN. [Concomitant]
     Active Substance: CIPROFLOXACIN
     Indication: OSTEOMYELITIS
     Dates: start: 202003

REACTIONS (3)
  - Central nervous system lesion [Recovered/Resolved]
  - Lacunar infarction [Recovered/Resolved]
  - Cerebellar ischaemia [Recovered/Resolved]

NARRATIVE: CASE EVENT DATE: 2020
